FAERS Safety Report 14651658 (Version 3)
Quarter: 2018Q2

REPORT INFORMATION
  Report Type: Spontaneous
  Country: US (occurrence: US)
  Receive Date: 20180317
  Receipt Date: 20180430
  Transmission Date: 20180711
  Serious: No
  Sender: FDA-Public Use
  Company Number: PHEH2018US008738

PATIENT
  Sex: Female

DRUGS (3)
  1. AZOPT [Suspect]
     Active Substance: BRINZOLAMIDE
     Dosage: UNK UNK, TID
     Route: 047
  2. AZOPT [Suspect]
     Active Substance: BRINZOLAMIDE
     Indication: PRODUCT USED FOR UNKNOWN INDICATION
     Dosage: UNK
     Route: 047
  3. AZOPT [Suspect]
     Active Substance: BRINZOLAMIDE
     Dosage: UNK
     Route: 047

REACTIONS (5)
  - Eye pain [Unknown]
  - Ocular discomfort [Unknown]
  - Intraocular pressure decreased [Unknown]
  - Eye irritation [Unknown]
  - Foreign body sensation in eyes [Unknown]
